FAERS Safety Report 15789260 (Version 2)
Quarter: 2019Q3

REPORT INFORMATION
  Report Type: Spontaneous
  Country: US (occurrence: US)
  Receive Date: 20190104
  Receipt Date: 20190708
  Transmission Date: 20191004
  Serious: No
  Sender: FDA-Public Use
  Company Number: US-MYLANLABS-2018M1092245

PATIENT
  Age: 60 Year
  Sex: Female

DRUGS (1)
  1. LEVOTHYROXINE SODIUM TABLETS, USP [Suspect]
     Active Substance: LEVOTHYROXINE SODIUM
     Indication: AUTOIMMUNE THYROIDITIS
     Dosage: 200 DOSAGE FORM
     Route: 048

REACTIONS (10)
  - Dysphonia [Unknown]
  - Product quality issue [Unknown]
  - Aphonia [Unknown]
  - Goitre [Unknown]
  - Product odour abnormal [Unknown]
  - Product container issue [Unknown]
  - Weight increased [Unknown]
  - Product storage error [Unknown]
  - Feeling abnormal [Unknown]
  - Fatigue [Unknown]

NARRATIVE: CASE EVENT DATE: 201806
